FAERS Safety Report 14890981 (Version 1)
Quarter: 2018Q2

REPORT INFORMATION
  Report Type: Spontaneous
  Country: JP (occurrence: JP)
  Receive Date: 20180514
  Receipt Date: 20180514
  Transmission Date: 20180711
  Serious: Yes (Death)
  Sender: FDA-Public Use
  Company Number: JP-SHIONOGI, INC-2018000862

PATIENT
  Sex: Female

DRUGS (2)
  1. SYMPROIC [Suspect]
     Active Substance: NALDEMEDINE
     Dosage: 0.2 MG, QD
     Route: 048
  2. MAGMITT [Suspect]
     Active Substance: MAGNESIUM OXIDE
     Indication: NEOPLASM MALIGNANT
     Dosage: UNK
     Route: 048

REACTIONS (2)
  - Neoplasm malignant [Fatal]
  - Diarrhoea [Unknown]
